FAERS Safety Report 5262655-1 (Version None)
Quarter: 2007Q1

REPORT INFORMATION
  Report Type: 
  Country: None (occurrence: None)
  Receive Date: 20070307
  Receipt Date: 20070220
  Transmission Date: 20070707
  Serious: Yes (Other)
  Sender: FDA-Public Use
  Company Number: GB-1161088

PATIENT
  Age: 81 Year
  Sex: Male

DRUGS (5)
  1. MAXITROL [Suspect]
     Dosage: EYE DROPS 3/ 1DAYS OPHTHALMIC
     Route: 047
     Dates: end: 20070114
  2. MYDRILATE(CYCLOPENTOLATE HYHDROCHLORIDE) [Concomitant]
  3. EZETIMIBE(EZETIMIBE) [Concomitant]
  4. LEVOTHYROXINE SODIUM [Concomitant]
  5. QUININE(QUINIDINE SULFATE) [Concomitant]

REACTIONS (1)
  - WHITE BLOOD CELL COUNT DECREASED [None]
